FAERS Safety Report 10853821 (Version 1)
Quarter: 2015Q1

REPORT INFORMATION
  Report Type: Spontaneous
  Country: US (occurrence: US)
  Receive Date: 20150223
  Receipt Date: 20150223
  Transmission Date: 20150721
  Serious: No
  Sender: FDA-Public Use
  Company Number: US-TEVA-541604USA

PATIENT
  Age: 52 Year
  Sex: Female

DRUGS (11)
  1. MAGNESIUM [Concomitant]
     Active Substance: MAGNESIUM
  2. VITAMIN D [Concomitant]
     Active Substance: CHOLECALCIFEROL
  3. BUDESONIDE. [Concomitant]
     Active Substance: BUDESONIDE
  4. METOPROLOL [Concomitant]
     Active Substance: METOPROLOL
  5. COPAXONE [Suspect]
     Active Substance: GLATIRAMER ACETATE
     Indication: MULTIPLE SCLEROSIS
     Route: 058
     Dates: start: 20140916
  6. LISINOPRIL. [Concomitant]
     Active Substance: LISINOPRIL
  7. ASPIRIN. [Concomitant]
     Active Substance: ASPIRIN
  8. BACLOFEN. [Concomitant]
     Active Substance: BACLOFEN
  9. LYRICA [Concomitant]
     Active Substance: PREGABALIN
  10. ENDOCET [Concomitant]
     Active Substance: ACETAMINOPHEN\OXYCODONE HYDROCHLORIDE
  11. IRON [Concomitant]
     Active Substance: IRON

REACTIONS (7)
  - Muscular weakness [Unknown]
  - Fatigue [Unknown]
  - Retching [Unknown]
  - Paraesthesia [Unknown]
  - Increased tendency to bruise [Unknown]
  - Injection site mass [Unknown]
  - Fall [Unknown]

NARRATIVE: CASE EVENT DATE: 201501
